FAERS Safety Report 5062504-0 (Version None)
Quarter: 2006Q3

REPORT INFORMATION
  Report Type: 
  Country: None (occurrence: None)
  Receive Date: 20060721
  Receipt Date: 20060712
  Transmission Date: 20061208
  Serious: Yes (Death, Hospitalization, Other)
  Sender: FDA-Public Use
  Company Number: 2006-01629

PATIENT
  Age: 66 Year
  Sex: Male

DRUGS (9)
  1. VELCADE [Suspect]
     Indication: MULTIPLE MYELOMA
     Dates: start: 20050501, end: 20060613
  2. DEXAMETHASONE [Suspect]
     Indication: DRUG USE FOR UNKNOWN INDICATION
     Dates: start: 20050501, end: 20060605
  3. ADRIAMYCIN PFS [Suspect]
     Indication: DRUG USE FOR UNKNOWN INDICATION
  4. BACTRIM [Concomitant]
  5. NEXIUM [Concomitant]
  6. AMITRIPTYLINE (AMITRIPTYLINE) [Concomitant]
  7. SIMVASTATIN [Concomitant]
  8. NYSTATIN [Concomitant]
  9. VALACYCLOVIR [Concomitant]

REACTIONS (16)
  - BRONCHIOLITIS [None]
  - DISEASE PROGRESSION [None]
  - HERPES ZOSTER [None]
  - INFECTION [None]
  - INFLAMMATION [None]
  - INFLUENZA [None]
  - LUNG DISORDER [None]
  - LYMPHOCYTE COUNT DECREASED [None]
  - MONOCYTE COUNT DECREASED [None]
  - PLATELET COUNT DECREASED [None]
  - PNEUMONIA [None]
  - PNEUMONITIS [None]
  - PULMONARY TOXICITY [None]
  - RESPIRATORY FAILURE [None]
  - VIRAL INFECTION [None]
  - WHITE BLOOD CELL COUNT DECREASED [None]
